FAERS Safety Report 17434766 (Version 3)
Quarter: 2022Q4

REPORT INFORMATION
  Report Type: Report from Study
  Country: CO (occurrence: CO)
  Receive Date: 20200219
  Receipt Date: 20221025
  Transmission Date: 20230112
  Serious: Yes (Hospitalization, Disabling, Other)
  Sender: FDA-Public Use
  Company Number: CO-TAKEDA-2019TUS047500

PATIENT
  Age: 56 Year
  Sex: Male
  Weight: 72 kg

DRUGS (2)
  1. VEDOLIZUMAB [Suspect]
     Active Substance: VEDOLIZUMAB
     Indication: Crohn^s disease
     Dosage: 300 MILLIGRAM, MONTHLY
     Route: 042
     Dates: start: 20190731
  2. VEDOLIZUMAB [Suspect]
     Active Substance: VEDOLIZUMAB
     Dosage: 300 MILLIGRAM
     Route: 042
     Dates: start: 20200117

REACTIONS (9)
  - Pneumonia [Unknown]
  - Cerebrovascular accident [Unknown]
  - Malaise [Unknown]
  - Hemiplegia [Unknown]
  - Aphasia [Unknown]
  - Dizziness [Unknown]
  - Headache [Unknown]
  - Nausea [Unknown]
  - Weight decreased [Unknown]

NARRATIVE: CASE EVENT DATE: 20190801
